FAERS Safety Report 10192040 (Version 2)
Quarter: 2014Q2

REPORT INFORMATION
  Report Type: Spontaneous
  Country: BR (occurrence: BR)
  Receive Date: 20140523
  Receipt Date: 20140610
  Transmission Date: 20141212
  Serious: Yes (Hospitalization)
  Sender: FDA-Public Use
  Company Number: BR-PFIZER INC-2014137249

PATIENT
  Age: 78 Year
  Sex: Male
  Weight: 100 kg

DRUGS (1)
  1. LIPITOR [Suspect]
     Indication: BLOOD CHOLESTEROL INCREASED
     Dosage: 20 MG, UNK
     Route: 048
     Dates: start: 2007

REACTIONS (3)
  - Arterial occlusive disease [Unknown]
  - Poor peripheral circulation [Unknown]
  - Hypoaesthesia [Unknown]
